FAERS Safety Report 7600362-8 (Version None)
Quarter: 2011Q3

REPORT INFORMATION
  Report Type: 
  Country: None (occurrence: None)
  Receive Date: 20110711
  Receipt Date: 20110706
  Transmission Date: 20111222
  Serious: Yes (Death, Life-Threatening, Hospitalization)
  Sender: FDA-Public Use
  Company Number: JP-GENZYME-FLUD-1000620

PATIENT
  Age: 66 Year
  Sex: Male
  Weight: 58 kg

DRUGS (11)
  1. THYMOGLOBULIN [Suspect]
     Indication: STEM CELL TRANSPLANT
     Dosage: 115 MG, CONTINUOUS INFUSION
     Route: 042
     Dates: start: 20091105, end: 20091106
  2. SULFAMETHOXAZOLE W [Concomitant]
     Indication: INFECTION PROPHYLAXIS
     Dosage: UNK
     Dates: start: 20091101, end: 20091112
  3. BUSULFAN [Suspect]
     Indication: STEM CELL TRANSPLANT
     Dosage: UNK
     Route: 065
     Dates: start: 20091107, end: 20091111
  4. METHYLPREDNISOLONE SODIUM SUCCINATE [Concomitant]
     Indication: PROPHYLAXIS AGAINST GRAFT VERSUS HOST DISEASE
     Dosage: UNK
     Dates: start: 20091104, end: 20091129
  5. CYCLOPHOSPHAMIDE [Concomitant]
     Indication: PROPHYLAXIS AGAINST GRAFT VERSUS HOST DISEASE
     Dosage: UNK
     Dates: start: 20091116, end: 20091116
  6. MYCOPHENOLATE MEFETIL [Concomitant]
     Indication: PROPHYLAXIS AGAINST GRAFT VERSUS HOST DISEASE
     Dosage: UNK
     Dates: start: 20091116, end: 20091129
  7. TACROLIMUS [Concomitant]
     Indication: PROPHYLAXIS AGAINST GRAFT VERSUS HOST DISEASE
     Dosage: UNK
     Dates: start: 20091116, end: 20091213
  8. MYCOPHENOLATE MEFETIL [Concomitant]
     Indication: GRAFT VERSUS HOST DISEASE
     Dosage: UNK
     Dates: start: 20091202, end: 20091213
  9. FLUDARA [Suspect]
     Indication: STEM CELL TRANSPLANT
     Dosage: 50 MG, UNK
     Route: 042
     Dates: start: 20091101, end: 20091110
  10. TACROLIMUS [Concomitant]
     Indication: GRAFT VERSUS HOST DISEASE
  11. ACYCLOVIR [Concomitant]
     Indication: INFECTION PROPHYLAXIS
     Dosage: UNK
     Dates: start: 20091125, end: 20091126

REACTIONS (5)
  - GRAFT VERSUS HOST DISEASE [None]
  - CARDIAC FAILURE CONGESTIVE [None]
  - CYTOMEGALOVIRUS TEST POSITIVE [None]
  - VIRAL HAEMORRHAGIC CYSTITIS [None]
  - FEBRILE NEUTROPENIA [None]
